FAERS Safety Report 7417695-0 (Version None)
Quarter: 2011Q2

REPORT INFORMATION
  Report Type: 
  Country: None (occurrence: None)
  Receive Date: 20110412
  Receipt Date: 20110412
  Transmission Date: 20111010
  Serious: No
  Sender: FDA-Public Use
  Company Number: None

PATIENT
  Sex: Female
  Weight: 95.2554 kg

DRUGS (2)
  1. VITAMIN D [Suspect]
     Indication: VITAMIN D DECREASED
     Dosage: 50,000 1 PER WEEK MOUTH
     Route: 048
  2. TRAMADOL HCL [Suspect]
     Indication: ARTHRALGIA
     Dosage: 100 MG ER 1 PER DAY MOUTH
     Route: 048
     Dates: start: 20110329

REACTIONS (7)
  - MUCOUS MEMBRANE DISORDER [None]
  - DIZZINESS [None]
  - NAUSEA [None]
  - SOMNOLENCE [None]
  - HYPERHIDROSIS [None]
  - COORDINATION ABNORMAL [None]
  - RETCHING [None]
